FAERS Safety Report 20139065 (Version 1)
Quarter: 2021Q4

REPORT INFORMATION
  Report Type: Other
  Country: CN (occurrence: None)
  Receive Date: 20211202
  Receipt Date: 20211202
  Transmission Date: 20220303
  Serious: Yes (Other)
  Sender: FDA-Public Use
  Company Number: CN-ROCHE-2971211

PATIENT

DRUGS (3)
  1. TRASTUZUMAB [Suspect]
     Active Substance: TRASTUZUMAB
     Indication: HER2 positive gastric cancer
     Dosage: SPECIFICATION: 440MG, 20ML/BOTTLE, 21 DAYS FOR ONE CYCLE
     Route: 041
  2. CAPECITABINE [Suspect]
     Active Substance: CAPECITABINE
     Indication: HER2 positive gastric cancer
     Dosage: 2500MG/M2, DIVIDED INTO 2 DOSE WITHIN 30 MINUTES AFTER MEALS (ONCE IN THE MORNING AND ONCE IN THE EV
     Route: 065
  3. CISPLATIN [Suspect]
     Active Substance: CISPLATIN
     Indication: HER2 positive gastric cancer
     Dosage: 20 MG/M2, PLUS 0.9% SODIUM CHLORIDE 250 ML INTRAVENOUS DRIP, ONCE A DAY, FOR 5 DAYS; OR 30 MG/M2, ON
     Route: 041

REACTIONS (1)
  - Myelosuppression [Unknown]
